FAERS Safety Report 9976119 (Version 1)
Quarter: 2014Q1

REPORT INFORMATION
  Report Type: Report from Study
  Country: US (occurrence: US)
  Receive Date: 20140306
  Receipt Date: 20140306
  Transmission Date: 20141002
  Serious: No
  Sender: FDA-Public Use
  Company Number: US-ABBVIE-13P-163-1167251-00

PATIENT
  Age: 57 Year
  Sex: Male

DRUGS (6)
  1. HUMIRA [Suspect]
     Indication: COLITIS ULCERATIVE
     Dates: start: 20121102, end: 20121102
  2. HUMIRA [Suspect]
     Dates: start: 20131103
  3. LISINOPRIL [Concomitant]
     Indication: BLOOD PRESSURE
     Dosage: 40MG DAILY
  4. AMLODIPINE [Concomitant]
     Indication: BLOOD PRESSURE
     Dosage: DAILY
  5. CLARITIN [Concomitant]
     Indication: HYPERSENSITIVITY
     Dosage: DAILY
  6. MULTIVITAMIN [Concomitant]
     Indication: PRODUCT USED FOR UNKNOWN INDICATION

REACTIONS (4)
  - Drug ineffective [Not Recovered/Not Resolved]
  - Frequent bowel movements [Not Recovered/Not Resolved]
  - Haematochezia [Not Recovered/Not Resolved]
  - Abdominal pain [Not Recovered/Not Resolved]
